FAERS Safety Report 19757323 (Version 1)
Quarter: 2021Q3

REPORT INFORMATION
  Report Type: Spontaneous
  Country: CA (occurrence: CA)
  Receive Date: 20210828
  Receipt Date: 20210828
  Transmission Date: 20211014
  Serious: Yes (Other)
  Sender: FDA-Public Use
  Company Number: CA-TAKEDA-2021TUS051968

PATIENT
  Age: 64 Year
  Sex: Female
  Weight: 74 kg

DRUGS (4)
  1. HUMAN NORMAL IMMUNOGLOBULIN [Suspect]
     Active Substance: HUMAN IMMUNOGLOBULIN G
     Indication: MYELOSUPPRESSION
     Dosage: 50 MILLILITER
     Route: 042
  2. HUMAN NORMAL IMMUNOGLOBULIN [Suspect]
     Active Substance: HUMAN IMMUNOGLOBULIN G
     Dosage: UNK
     Route: 065
  3. HUMAN NORMAL IMMUNOGLOBULIN [Suspect]
     Active Substance: HUMAN IMMUNOGLOBULIN G
     Dosage: 100 MILLILITER
     Route: 042
  4. HUMAN NORMAL IMMUNOGLOBULIN [Suspect]
     Active Substance: HUMAN IMMUNOGLOBULIN G
     Dosage: 50 MILLILITER
     Route: 042

REACTIONS (6)
  - Tachycardia [Unknown]
  - Acute pulmonary oedema [Unknown]
  - Hypertension [Unknown]
  - Tachypnoea [Unknown]
  - Dyspnoea [Unknown]
  - Hypoxia [Unknown]
